FAERS Safety Report 11273128 (Version 1)
Quarter: 2015Q3

REPORT INFORMATION
  Report Type: Spontaneous
  Country: US (occurrence: US)
  Receive Date: 20150715
  Receipt Date: 20150715
  Transmission Date: 20151125
  Serious: Yes (Other)
  Sender: FDA-Public Use
  Company Number: US-BAYER-2015-372669

PATIENT

DRUGS (1)
  1. ALEVE [Suspect]
     Active Substance: NAPROXEN SODIUM
     Dosage: UNK

REACTIONS (6)
  - Intestinal obstruction [Not Recovered/Not Resolved]
  - Small intestine transplant [None]
  - Renal disorder [Not Recovered/Not Resolved]
  - Liver transplant [None]
  - Spleen disorder [None]
  - Intestinal transplant [None]
